FAERS Safety Report 6425262-0 (Version None)
Quarter: 2009Q4

REPORT INFORMATION
  Report Type: 
  Country: None (occurrence: None)
  Receive Date: 20091103
  Receipt Date: 20091027
  Transmission Date: 20100525
  Serious: Yes (Hospitalization, Other)
  Sender: FDA-Public Use
  Company Number: DE-ABBOTT-09P-062-0570144-00

PATIENT
  Sex: Female
  Weight: 98 kg

DRUGS (5)
  1. HUMIRA [Suspect]
     Indication: CROHN'S DISEASE
     Route: 058
     Dates: start: 20080201, end: 20090424
  2. LOPERAMIDE [Concomitant]
     Indication: CROHN'S DISEASE
     Route: 048
     Dates: start: 20070201, end: 20090414
  3. AZATHIOPRIN [Concomitant]
     Indication: CROHN'S DISEASE
     Dosage: 250MG DAILY
     Route: 065
     Dates: start: 20070201, end: 20090414
  4. DEPO-CLINOVIR [Concomitant]
     Indication: ORAL CONTRACEPTION
     Route: 030
     Dates: start: 19900101, end: 20090424
  5. METAMIZOLE [Concomitant]
     Indication: PAIN

REACTIONS (2)
  - RENAL COLIC [None]
  - URINARY RETENTION [None]
